FAERS Safety Report 8885800 (Version 1)
Quarter: 2012Q4

REPORT INFORMATION
  Report Type: 
  Country: US (occurrence: US)
  Receive Date: 20121105
  Receipt Date: 20121105
  Transmission Date: 20130627
  Serious: Yes (Hospitalization, Other)
  Sender: FDA-Public Use
  Company Number: US-ELI_LILLY_AND_COMPANY-US201210007814

PATIENT
  Sex: Male

DRUGS (14)
  1. CYMBALTA [Suspect]
     Indication: DEPRESSION
     Dosage: 60 mg, qd
  2. CYMBALTA [Suspect]
     Dosage: 60 mg, bid
  3. METFORMIN [Concomitant]
     Dosage: UNK, unknown
  4. RITALIN [Concomitant]
     Dosage: UNK, unknown
  5. LEVOTHYROXINE [Concomitant]
     Dosage: UNK, unknown
  6. GABAPENTIN [Concomitant]
     Dosage: UNK, unknown
  7. AMLODIPINE BESYLATE [Concomitant]
     Dosage: UNK, unknown
  8. PRILOSEC [Concomitant]
     Dosage: UNK, unknown
  9. MORPHINE SULFATE [Concomitant]
     Dosage: UNK, unknown
  10. HYDROCODONE W/ACETAMINOPHEN [Concomitant]
     Dosage: UNK, unknown
  11. ATORVASTATIN [Concomitant]
     Dosage: UNK, unknown
  12. ASPIRIN [Concomitant]
     Dosage: UNK, unknown
  13. KLONOPIN [Concomitant]
     Dosage: UNK, unknown
  14. RAMIPRIL [Concomitant]
     Dosage: UNK, unknown

REACTIONS (10)
  - Hip surgery [Unknown]
  - Knee operation [Unknown]
  - Staphylococcal infection [Unknown]
  - Suicidal ideation [Unknown]
  - Postoperative wound complication [Unknown]
  - Secretion discharge [Unknown]
  - Pain [Not Recovered/Not Resolved]
  - Intervertebral disc protrusion [Unknown]
  - Intervertebral disc protrusion [Unknown]
  - Hypoaesthesia [Not Recovered/Not Resolved]
